FAERS Safety Report 21379165 (Version 3)
Quarter: 2022Q4

REPORT INFORMATION
  Report Type: Report from Study
  Country: HU (occurrence: HU)
  Receive Date: 20220927
  Receipt Date: 20221007
  Transmission Date: 20230113
  Serious: Yes (Hospitalization)
  Sender: FDA-Public Use
  Company Number: HU-ABBVIE-4130826

PATIENT
  Sex: Female

DRUGS (6)
  1. CARBIDOPA\LEVODOPA [Suspect]
     Active Substance: CARBIDOPA\LEVODOPA
     Indication: Parkinson^s disease
     Dosage: MORNING DOSE: 5.0 ML; CONTINUOUS DOSE: 1.6ML/HOUR; EXTRA DOSE: 1.2 ML
     Route: 050
     Dates: start: 20150228
  2. CARBIDOPA\LEVODOPA [Suspect]
     Active Substance: CARBIDOPA\LEVODOPA
  3. FOSICARD PLUS [Concomitant]
     Indication: Product used for unknown indication
     Dosage: 20 MG FOSINOPRIL AND 12,5 MG HYDROCHLOROTHIAZIDE/ TABLET
     Route: 048
  4. CLOPIDOGREL BISULFATE [Concomitant]
     Active Substance: CLOPIDOGREL BISULFATE
     Indication: Product used for unknown indication
     Dosage: 75 MILLIGRAM
     Route: 048
  5. FOSICARD PLUS [Concomitant]
     Indication: Blood pressure management
     Dosage: 20 MG FOSINOPRIL AND 12,5 MG HYDROCHLOROTHIAZIDE/ TABLET
     Route: 048
  6. QUETIAPINE [Concomitant]
     Active Substance: QUETIAPINE
     Indication: Product used for unknown indication
     Dosage: 25 MILLIGRAM, 1 TABLET IN THE EVENING
     Route: 048

REACTIONS (2)
  - Loss of consciousness [Recovered/Resolved]
  - Hypotension [Recovered/Resolved]

NARRATIVE: CASE EVENT DATE: 20220922
